FAERS Safety Report 19944994 (Version 3)
Quarter: 2022Q2

REPORT INFORMATION
  Report Type: Report from Study
  Country: BR (occurrence: BR)
  Receive Date: 20211012
  Receipt Date: 20220414
  Transmission Date: 20220721
  Serious: Yes (Other)
  Sender: FDA-Public Use
  Company Number: BR-NOVARTISPH-NVSC2021BR227073

PATIENT
  Age: 19 Year
  Sex: Female

DRUGS (3)
  1. GILENYA [Suspect]
     Active Substance: FINGOLIMOD HYDROCHLORIDE
     Indication: Multiple sclerosis
     Dosage: UNK
     Route: 065
     Dates: start: 201201, end: 2015
  2. GILENYA [Suspect]
     Active Substance: FINGOLIMOD HYDROCHLORIDE
     Dosage: UNK
     Route: 065
     Dates: start: 202101
  3. NATALIZUMAB [Concomitant]
     Active Substance: NATALIZUMAB
     Indication: Product used for unknown indication
     Dosage: UNK
     Route: 065
     Dates: end: 20200212

REACTIONS (16)
  - Optic neuritis [Recovered/Resolved]
  - Optic neuritis [Not Recovered/Not Resolved]
  - Hemiparesis [Not Recovered/Not Resolved]
  - Spinal cord injury [Recovered/Resolved]
  - Multiple sclerosis relapse [Unknown]
  - Gait inability [Unknown]
  - Fatigue [Unknown]
  - Pigmentation disorder [Not Recovered/Not Resolved]
  - Tongue geographic [Not Recovered/Not Resolved]
  - Nail infection [Recovered/Resolved]
  - Nail disorder [Recovered/Resolved]
  - Nail bed inflammation [Recovered/Resolved]
  - Pruritus [Not Recovered/Not Resolved]
  - Paraesthesia [Unknown]
  - Drug monitoring procedure not performed [Not Recovered/Not Resolved]
  - Product availability issue [Unknown]

NARRATIVE: CASE EVENT DATE: 20120101
